FAERS Safety Report 5904779-9 (Version None)
Quarter: 2008Q3

REPORT INFORMATION
  Report Type: 
  Country: None (occurrence: None)
  Receive Date: 20080909
  Receipt Date: 20080613
  Transmission Date: 20090109
  Serious: Yes (Death)
  Sender: FDA-Public Use
  Company Number: 163-20785-08050816

PATIENT
  Age: 88 Year
  Sex: Female

DRUGS (1)
  1. THALOMID [Suspect]
     Indication: MYELOFIBROSIS
     Dosage: 50 MG, 1 IN 1 D, ORAL
     Route: 048
     Dates: start: 20080314, end: 20080502

REACTIONS (2)
  - CARDIAC FAILURE CONGESTIVE [None]
  - MYELOFIBROSIS [None]
